FAERS Safety Report 5825355-2 (Version None)
Quarter: 2008Q3

REPORT INFORMATION
  Report Type: 
  Country: None (occurrence: None)
  Receive Date: 20080728
  Receipt Date: 20080728
  Transmission Date: 20090109
  Serious: No
  Sender: FDA-Public Use
  Company Number: None

PATIENT
  Sex: Female
  Weight: 17 kg

DRUGS (1)
  1. ZONEGRAN [Suspect]
     Indication: EPILEPSY
     Dosage: 25MG 2TABS BID ORAL
     Route: 048
     Dates: start: 20080208

REACTIONS (2)
  - CONVULSION [None]
  - FALL [None]
